FAERS Safety Report 15720010 (Version 4)
Quarter: 2019Q1

REPORT INFORMATION
  Report Type: Spontaneous
  Country: US (occurrence: US)
  Receive Date: 20181213
  Receipt Date: 20190329
  Transmission Date: 20190417
  Serious: Yes (Hospitalization, Other)
  Sender: FDA-Public Use
  Company Number: US-BAYER-2018-232005

PATIENT
  Age: 46 Year
  Sex: Male

DRUGS (3)
  1. KOGENATE FS [Suspect]
     Active Substance: ANTIHEMOPHILIC FACTOR, HUMAN RECOMBINANT
     Indication: FACTOR VIII DEFICIENCY
     Dosage: 2950 IU, PRN, FOR BLEEDS UP TO ONE A DAY
     Route: 042
     Dates: start: 20150930
  2. KOGENATE FS [Suspect]
     Active Substance: ANTIHEMOPHILIC FACTOR, HUMAN RECOMBINANT
     Indication: CATHETER SITE HAEMORRHAGE
     Dosage: 2950 IU, QD, AS DIRECTED FOR BLEEDING EPISODES
     Dates: start: 20151001
  3. KOGENATE FS [Suspect]
     Active Substance: ANTIHEMOPHILIC FACTOR, HUMAN RECOMBINANT
     Indication: HAEMORRHAGE
     Dosage: 2950 IU, AS NEEDED FOR BLEEDS UP TO ONCE A DAY
     Route: 042

REACTIONS (4)
  - Cerebrovascular accident [Recovering/Resolving]
  - Haemorrhage [None]
  - Cerebrovascular accident [Unknown]
  - Catheter site haemorrhage [Not Recovered/Not Resolved]

NARRATIVE: CASE EVENT DATE: 2018
